FAERS Safety Report 17521905 (Version 3)
Quarter: 2020Q1

REPORT INFORMATION
  Report Type: Report from Study
  Country: US (occurrence: US)
  Receive Date: 20200310
  Receipt Date: 20200321
  Transmission Date: 20200409
  Serious: Yes (Hospitalization)
  Sender: FDA-Public Use
  Company Number: NVSC2020US066599

PATIENT
  Age: 73 Year
  Sex: Male
  Weight: 96.4 kg

DRUGS (23)
  1. TIOTROPIUM (SPIRIVA) 18 MCG INHALATION CAPSULE [Concomitant]
     Indication: HYPERCAPNIA
  2. DIOVAN [Suspect]
     Active Substance: VALSARTAN
     Indication: CARDIAC FAILURE ACUTE
     Dosage: CODE NOT BROKEN
     Route: 048
     Dates: start: 20200120
  3. BLINDED NO TREATMENT RECEIVED [Suspect]
     Active Substance: INVESTIGATIONAL PRODUCT
     Indication: CARDIAC FAILURE ACUTE
     Dosage: CODE NOT BROKEN
     Route: 048
     Dates: start: 20200120
  4. BLINDED LCZ696 [Suspect]
     Active Substance: SACUBITRIL\VALSARTAN
     Dosage: CODE NOT BROKEN
     Route: 048
     Dates: start: 20200203, end: 20200217
  5. BLINDED NO TREATMENT RECEIVED [Suspect]
     Active Substance: INVESTIGATIONAL PRODUCT
     Dosage: CODE NOT BROKEN
     Route: 048
     Dates: start: 20200203, end: 20200217
  6. TAMSULOSIN [Concomitant]
     Active Substance: TAMSULOSIN
     Indication: BENIGN PROSTATIC HYPERPLASIA
     Dosage: 0.4 MG
     Route: 065
     Dates: start: 20200113
  7. BUMETANIDE (BUMEX) 1 MG TABLET [Concomitant]
     Indication: CARDIAC FAILURE
     Dosage: 1 MG
     Route: 065
     Dates: start: 20181228
  8. GEMFIBROZIL (LOPID) 600 MG TABLET [Concomitant]
     Indication: HYPERLIPIDAEMIA
     Dosage: 600 MG
     Route: 065
     Dates: start: 20181214
  9. METFORMIN (GLUCOPHAGE) 1000 MG TABLET [Concomitant]
     Indication: TYPE 2 DIABETES MELLITUS
     Dosage: 1000 MG
     Route: 065
     Dates: start: 20181204
  10. BLINDED LCZ696 [Suspect]
     Active Substance: SACUBITRIL\VALSARTAN
     Indication: CARDIAC FAILURE ACUTE
     Dosage: CODE NOT BROKEN
     Route: 048
     Dates: start: 20200120
  11. APIXABAN (ELIQUIS) 5 MG TABLET [Concomitant]
     Indication: ATRIAL FIBRILLATION
     Dosage: 5 MG
     Route: 065
     Dates: start: 20200304
  12. BLINDED LCZ696 [Suspect]
     Active Substance: SACUBITRIL\VALSARTAN
     Dosage: CODE NOT BROKEN
     Route: 048
     Dates: start: 20200217
  13. ATORVASTATIN (LIPITOR) 80 MG TABLET [Concomitant]
     Indication: DYSLIPIDAEMIA
     Dosage: 80 MG
     Route: 065
     Dates: start: 20200304
  14. FERROUS GLUCONATE (FERGON) 324 MG TABLET [Concomitant]
     Indication: IRON DEFICIENCY ANAEMIA
     Dosage: 324 MG
     Route: 065
     Dates: start: 20200121
  15. FLUTICASONE-SALMETEROL (ADVAIR) 250-50 MCG/INH DISKUS INHALER [Concomitant]
     Indication: PRODUCT USED FOR UNKNOWN INDICATION
     Dosage: 250-50 MCG/INH
     Route: 065
     Dates: start: 20181218
  16. DIOVAN [Suspect]
     Active Substance: VALSARTAN
     Indication: CARDIAC FAILURE ACUTE
     Dosage: CODE NOT BROKEN
     Route: 048
     Dates: start: 20200120
  17. DIOVAN [Suspect]
     Active Substance: VALSARTAN
     Dosage: CODE NOT BROKEN
     Route: 048
     Dates: start: 20200203, end: 20200217
  18. DIOVAN [Suspect]
     Active Substance: VALSARTAN
     Dosage: CODE NOT BROKEN
     Route: 048
     Dates: start: 20200217
  19. DIOVAN [Suspect]
     Active Substance: VALSARTAN
     Dosage: CODE NOT BROKEN
     Route: 048
     Dates: start: 20200203, end: 20200217
  20. DIOVAN [Suspect]
     Active Substance: VALSARTAN
     Dosage: CODE NOT BROKEN
     Route: 048
     Dates: start: 20200217
  21. BLINDED NO TREATMENT RECEIVED [Suspect]
     Active Substance: INVESTIGATIONAL PRODUCT
     Dosage: CODE NOT BROKEN
     Route: 048
     Dates: start: 20200217
  22. SENNA (SENOKOT) 8.6 MG TAB TABLET [Concomitant]
     Indication: IRON DEFICIENCY ANAEMIA
     Dosage: 8.6 MG
     Route: 065
     Dates: start: 20200122, end: 20200305
  23. TIOTROPIUM (SPIRIVA) 18 MCG INHALATION CAPSULE [Concomitant]
     Indication: RESPIRATORY FAILURE
     Dosage: 18 MCG, UNK
     Route: 065
     Dates: start: 20181214

REACTIONS (1)
  - Acute kidney injury [Recovered/Resolved]

NARRATIVE: CASE EVENT DATE: 20200302
